FAERS Safety Report 16690509 (Version 4)
Quarter: 2019Q3

REPORT INFORMATION
  Report Type: Spontaneous
  Country: US (occurrence: US)
  Receive Date: 20190810
  Receipt Date: 20190906
  Transmission Date: 20191004
  Serious: Yes (Hospitalization, Other)
  Sender: FDA-Public Use
  Company Number: US-UNITED THERAPEUTICS-UNT-2019-013378

PATIENT
  Age: 49 Year
  Sex: Female
  Weight: 99.77 kg

DRUGS (4)
  1. TYVASO [Suspect]
     Active Substance: TREPROSTINIL
     Indication: PULMONARY ARTERIAL HYPERTENSION
     Dosage: 18-54 ?G, QID
     Dates: start: 20190729
  2. TADALAFIL. [Concomitant]
     Active Substance: TADALAFIL
     Indication: PRODUCT USED FOR UNKNOWN INDICATION
     Dosage: UNK
     Route: 065
  3. TYVASO [Suspect]
     Active Substance: TREPROSTINIL
     Dosage: UNK
  4. TYVASO [Suspect]
     Active Substance: TREPROSTINIL
     Dosage: 30 ?G, UNK
     Dates: start: 20190807

REACTIONS (9)
  - Joint swelling [Unknown]
  - Pain in extremity [Unknown]
  - Productive cough [Unknown]
  - Nasopharyngitis [Unknown]
  - Pleural effusion [Unknown]
  - Headache [Unknown]
  - Pericardial effusion [Unknown]
  - Nausea [Unknown]
  - Wheezing [Unknown]

NARRATIVE: CASE EVENT DATE: 2019
